FAERS Safety Report 4969149-9 (Version None)
Quarter: 2006Q2

REPORT INFORMATION
  Report Type: 
  Country: None (occurrence: None)
  Receive Date: 20060411
  Receipt Date: 20050718
  Transmission Date: 20061013
  Serious: Yes (Death)
  Sender: FDA-Public Use
  Company Number: US-BRISTOL-MYERS SQUIBB COMPANY-13042965

PATIENT
  Sex: Male

DRUGS (1)
  1. PARAPLATIN [Suspect]

REACTIONS (1)
  - MALIGNANT NEOPLASM PROGRESSION [None]
